FAERS Safety Report 15023306 (Version 1)
Quarter: 2018Q2

REPORT INFORMATION
  Report Type: Spontaneous
  Country: US (occurrence: US)
  Receive Date: 20180525
  Receipt Date: 20180525
  Transmission Date: 20180711
  Serious: No
  Sender: FDA-Public Use
  Company Number: None

PATIENT
  Age: 64 Year
  Sex: Male

DRUGS (3)
  1. DESCOVY [Concomitant]
     Active Substance: EMTRICITABINE\TENOFOVIR ALAFENAMIDE FUMARATE
  2. ABACAVIR. [Concomitant]
     Active Substance: ABACAVIR
  3. ABACAVIR TAB 300MG [Suspect]
     Active Substance: ABACAVIR
     Dates: start: 20180117, end: 20180525

REACTIONS (1)
  - Fatigue [None]

NARRATIVE: CASE EVENT DATE: 20180503
